FAERS Safety Report 4847769-X (Version None)
Quarter: 2005Q4

REPORT INFORMATION
  Report Type: 
  Country: None (occurrence: None)
  Receive Date: 20051207
  Receipt Date: 20051005
  Transmission Date: 20060501
  Serious: Yes (Hospitalization)
  Sender: FDA-Public Use
  Company Number: US-MERCK-0510USA04225

PATIENT
  Age: 59 Year
  Sex: Female
  Weight: 120 kg

DRUGS (10)
  1. VIOXX [Suspect]
     Indication: ARTHRITIS
     Route: 048
     Dates: start: 20021113, end: 20040101
  2. DARVOCET-N 100 [Concomitant]
     Route: 065
  3. CIPRO [Concomitant]
     Route: 048
  4. ALBUTEROL [Concomitant]
     Route: 065
  5. LOPRESSOR [Concomitant]
     Route: 048
  6. HYDROCHLOROTHIAZIDE [Concomitant]
     Route: 048
  7. AMITRIPTYLINE HYDROCHLORIDE [Concomitant]
     Route: 048
  8. LEXAPRO [Concomitant]
     Route: 048
  9. DETROL [Concomitant]
     Route: 065
  10. GLUCOPHAGE [Concomitant]
     Route: 048

REACTIONS (10)
  - ACUTE MYOCARDIAL INFARCTION [None]
  - BRADYCARDIA [None]
  - CARDIOVASCULAR DISORDER [None]
  - CORONARY ARTERY DISEASE [None]
  - CORONARY ARTERY STENOSIS [None]
  - DRUG HYPERSENSITIVITY [None]
  - HYPOKALAEMIA [None]
  - HYPOTENSION [None]
  - JOINT ARTHROPLASTY [None]
  - LIMB OPERATION [None]
